FAERS Safety Report 4676780-7 (Version None)
Quarter: 2005Q2

REPORT INFORMATION
  Report Type: 
  Country: None (occurrence: None)
  Receive Date: 20050527
  Receipt Date: 20020516
  Transmission Date: 20051028
  Serious: Yes (Hospitalization, Other)
  Sender: FDA-Public Use
  Company Number: US-MERCK-0205USA02079

PATIENT
  Age: 80 Year
  Sex: Female
  Weight: 55 kg

DRUGS (15)
  1. VIOXX [Suspect]
     Indication: CARDIAC DISORDER
     Route: 048
     Dates: start: 20001030, end: 20010801
  2. VIOXX [Suspect]
     Route: 048
     Dates: start: 20010802, end: 20011101
  3. FOSAMAX [Concomitant]
     Route: 048
     Dates: start: 20011009, end: 20020901
  4. BAYCOL [Concomitant]
     Route: 065
     Dates: start: 20010718
  5. FOLIC ACID [Concomitant]
     Route: 065
     Dates: start: 20010626
  6. BETIMOL [Concomitant]
     Indication: EYE OPERATION
     Route: 047
     Dates: start: 20000610
  7. VICODIN [Concomitant]
     Route: 065
     Dates: start: 20010530
  8. NORVASC [Concomitant]
     Route: 065
  9. EVISTA [Concomitant]
     Route: 065
  10. BENADRYL [Concomitant]
     Indication: HYPERSENSITIVITY
     Route: 065
  11. [THERAPY UNSPECIFIED] [Concomitant]
     Indication: HYPERSENSITIVITY
     Route: 065
  12. PRINIVIL [Concomitant]
     Route: 048
  13. PRAVACHOL [Concomitant]
     Route: 065
     Dates: end: 20010621
  14. CELEBREX [Concomitant]
     Route: 065
  15. SOMA [Concomitant]
     Route: 065

REACTIONS (30)
  - ACUTE MYOCARDIAL INFARCTION [None]
  - ANAEMIA [None]
  - ANGINA PECTORIS [None]
  - ARTERIAL DISORDER [None]
  - ARTHRALGIA [None]
  - ATHEROSCLEROSIS [None]
  - BACK DISORDER [None]
  - CARDIAC FAILURE CONGESTIVE [None]
  - CHEST PAIN [None]
  - CORONARY ARTERY DISEASE [None]
  - DEHYDRATION [None]
  - DERMATITIS ALLERGIC [None]
  - DIABETES MELLITUS NON-INSULIN-DEPENDENT [None]
  - DYSPEPSIA [None]
  - DYSPNOEA [None]
  - EAR INFECTION [None]
  - EMOTIONAL DISTRESS [None]
  - GASTROENTERITIS [None]
  - HAEMATOMA [None]
  - HIATUS HERNIA [None]
  - HYPERTENSION [None]
  - INJURY [None]
  - MYOCARDIAL INFARCTION [None]
  - OSTEOARTHRITIS [None]
  - OSTEOPOROSIS [None]
  - RENAL FAILURE [None]
  - SCIATICA [None]
  - SPONDYLOLISTHESIS [None]
  - STRESS [None]
  - SUPRAVENTRICULAR EXTRASYSTOLES [None]
